FAERS Safety Report 9198029 (Version 1)
Quarter: 2013Q1

REPORT INFORMATION
  Report Type: Spontaneous
  Country: US (occurrence: US)
  Receive Date: 20130328
  Receipt Date: 20130328
  Transmission Date: 20140127
  Serious: Yes (Other)
  Sender: FDA-Public Use
  Company Number: US-TEVA-394899USA

PATIENT
  Sex: Male

DRUGS (2)
  1. COPAXONE [Suspect]
     Indication: MULTIPLE SCLEROSIS
     Dosage: 1/2 HALF DOSE FOR FIRST TWO WEEKS
     Dates: start: 20130101, end: 20130307
  2. COPAXONE [Suspect]
     Dosage: FULL DOSE
     Dates: end: 20130307

REACTIONS (2)
  - Suicidal ideation [Unknown]
  - Inappropriate schedule of drug administration [Unknown]
